FAERS Safety Report 9495391 (Version 2)
Quarter: 2013Q3

REPORT INFORMATION
  Report Type: Report from Study
  Country: AR (occurrence: AR)
  Receive Date: 20130903
  Receipt Date: 20130904
  Transmission Date: 20140515
  Serious: Yes (Death)
  Sender: FDA-Public Use
  Company Number: AR-VIIV HEALTHCARE LIMITED-B0919929A

PATIENT
  Sex: 0

DRUGS (1)
  1. DOLUTEGRAVIR [Suspect]
     Indication: HIV INFECTION

REACTIONS (1)
  - Death [Fatal]
